FAERS Safety Report 9016406 (Version 1)
Quarter: 2013Q1

REPORT INFORMATION
  Report Type: Spontaneous
  Country: US (occurrence: US)
  Receive Date: 20130116
  Receipt Date: 20130116
  Transmission Date: 20140127
  Serious: Yes (Hospitalization)
  Sender: FDA-Public Use
  Company Number: US-GLAXOSMITHKLINE-A0897046A

PATIENT
  Age: 73 Year
  Sex: Male

DRUGS (10)
  1. AVANDIA [Suspect]
     Indication: TYPE 2 DIABETES MELLITUS
     Dosage: 4MG PER DAY
     Route: 048
     Dates: start: 20021204, end: 20070415
  2. PRILOSEC [Concomitant]
  3. GLYNASE [Concomitant]
  4. TOPROL [Concomitant]
  5. ASPIRIN [Concomitant]
  6. CLARINEX [Concomitant]
  7. CRESTOR [Concomitant]
  8. ALTACE [Concomitant]
  9. LASIX [Concomitant]
  10. MIRALAX [Concomitant]

REACTIONS (2)
  - Angina unstable [Not Recovered/Not Resolved]
  - Arteriosclerosis [Unknown]
